FAERS Safety Report 10788171 (Version 1)
Quarter: 2015Q1

REPORT INFORMATION
  Report Type: Spontaneous
  Country: US (occurrence: None)
  Receive Date: 20150211
  Receipt Date: 20150211
  Transmission Date: 20150721
  Serious: No
  Sender: FDA-Public Use
  Company Number: None

PATIENT
  Age: 39 Year
  Sex: Female
  Weight: 53.5 kg

DRUGS (1)
  1. CERDELGA [Suspect]
     Active Substance: ELIGLUSTAT
     Indication: LIPIDOSIS
     Route: 048
     Dates: start: 20150113

REACTIONS (6)
  - Anxiety [None]
  - Eructation [None]
  - Dyspepsia [None]
  - Heart rate increased [None]
  - Painful defaecation [None]
  - Constipation [None]

NARRATIVE: CASE EVENT DATE: 20150126
